FAERS Safety Report 7998633-9 (Version None)
Quarter: 2011Q4

REPORT INFORMATION
  Report Type: 
  Country: None (occurrence: None)
  Receive Date: 20111221
  Receipt Date: 20111221
  Transmission Date: 20120403
  Serious: Yes (Death, Life-Threatening, Hospitalization)
  Sender: FDA-Public Use
  Company Number: JP-B.I. PHARMACEUTICALS,INC./RIDGEFIELD-2011-BP-27812NB

PATIENT
  Sex: Male
  Weight: 55 kg

DRUGS (11)
  1. FUROSEMIDE [Concomitant]
     Dosage: UNK
     Route: 048
     Dates: start: 20110627
  2. RIFAMPICIN [Concomitant]
     Dosage: 450 MG
     Route: 048
  3. MUCOSTA [Concomitant]
     Dosage: 200 MG
     Route: 048
  4. ARGAMATE [Concomitant]
     Indication: PROPHYLAXIS
     Dosage: 25 G
     Route: 048
  5. FUROSEMIDE [Concomitant]
     Dosage: 60 MG
     Route: 048
  6. ETHAMBUTOL HYDROCHLORIDE [Concomitant]
     Dosage: 500 MG
     Route: 048
  7. MAGNESIUM OXIDE [Concomitant]
     Dosage: 660 MG
     Route: 048
  8. NORVASC [Concomitant]
     Dosage: 10 MG
     Route: 048
  9. CLARITHROMYCIN [Concomitant]
     Dosage: 200 MG
     Route: 048
  10. SPIRIVA [Suspect]
     Indication: CHRONIC OBSTRUCTIVE PULMONARY DISEASE
     Dosage: 2.5 MCG
     Route: 055
     Dates: start: 20101207, end: 20110817
  11. CARVEDILOL [Suspect]
     Dosage: 10 MG
     Route: 048
     Dates: end: 20110610

REACTIONS (3)
  - PNEUMONIA [None]
  - CARDIAC FAILURE [None]
  - LOSS OF CONSCIOUSNESS [None]
